FAERS Safety Report 19188624 (Version 1)
Quarter: 2021Q2

REPORT INFORMATION
  Report Type: Spontaneous
  Country: US (occurrence: US)
  Receive Date: 20210427
  Receipt Date: 20210427
  Transmission Date: 20210717
  Serious: Yes (Hospitalization)
  Sender: FDA-Public Use
  Company Number: US-PRINSTON PHARMACEUTICAL INC.-2019PRN00786

PATIENT
  Age: 78 Year
  Sex: Female

DRUGS (5)
  1. CLONAZEPAM. [Suspect]
     Active Substance: CLONAZEPAM
     Indication: DIZZINESS
     Dosage: 0.5 TABLETS, AS NEEDED
     Dates: start: 201906, end: 201908
  2. XANAX [Concomitant]
     Active Substance: ALPRAZOLAM
  3. BIOTIN [Concomitant]
     Active Substance: BIOTIN
  4. CLONAZEPAM. [Suspect]
     Active Substance: CLONAZEPAM
     Indication: VERTIGO
  5. VITAMAIN D [Concomitant]

REACTIONS (5)
  - Vertigo [Recovering/Resolving]
  - Product substitution issue [Recovered/Resolved]
  - Drug ineffective for unapproved indication [Recovered/Resolved]
  - Dizziness [Recovering/Resolving]
  - Sleep disorder [Recovering/Resolving]

NARRATIVE: CASE EVENT DATE: 201908
